FAERS Safety Report 5818229-4 (Version None)
Quarter: 2008Q3

REPORT INFORMATION
  Report Type: 
  Country: None (occurrence: None)
  Receive Date: 20080722
  Receipt Date: 20080515
  Transmission Date: 20090109
  Serious: No
  Sender: FDA-Public Use
  Company Number: US-BAYER-200812187BCC

PATIENT
  Age: 72 Year
  Sex: Male
  Weight: 142 kg

DRUGS (6)
  1. ALEVE [Suspect]
     Indication: ANALGESIA
     Dosage: AS USED: 220 MG  UNIT DOSE: 220 MG
     Route: 048
     Dates: end: 20080513
  2. ASPIRIN [Concomitant]
  3. ZOCOR [Concomitant]
  4. DIAVAN [Concomitant]
  5. PREVACID [Concomitant]
  6. ALLEGRA [Concomitant]

REACTIONS (2)
  - DIZZINESS [None]
  - HYPERHIDROSIS [None]
